FAERS Safety Report 8968091 (Version 1)
Quarter: 2012Q4

REPORT INFORMATION
  Report Type: 
  Country: US (occurrence: US)
  Receive Date: 20121218
  Receipt Date: 20121218
  Transmission Date: 20130627
  Serious: No
  Sender: FDA-Public Use
  Company Number: US-PFIZER INC-2012315417

PATIENT
  Age: 50 Year
  Sex: Female
  Weight: 51 kg

DRUGS (3)
  1. ADVIL [Suspect]
     Indication: HEADACHE
     Dosage: UNK, two times a day
     Route: 048
     Dates: start: 2010, end: 20121211
  2. LEVOTHYROXINE [Concomitant]
     Indication: UNSPECIFIED DISORDER OF THYROID
     Dosage: UNK
  3. TRINESSA [Concomitant]
     Indication: BIRTH CONTROL
     Dosage: UNK

REACTIONS (2)
  - Hypothyroidism [Unknown]
  - Haemoglobin decreased [Unknown]
